FAERS Safety Report 6906894-X (Version None)
Quarter: 2010Q3

REPORT INFORMATION
  Report Type: 
  Country: None (occurrence: None)
  Receive Date: 20100804
  Receipt Date: 20100727
  Transmission Date: 20110219
  Serious: Yes (Hospitalization)
  Sender: FDA-Public Use
  Company Number: US-ELI_LILLY_AND_COMPANY-US201007007152

PATIENT
  Sex: Male

DRUGS (2)
  1. HUMALOG [Suspect]
     Indication: DIABETES MELLITUS
     Dosage: 20 U, 3/D
  2. INSULIN [Concomitant]

REACTIONS (7)
  - EXPIRED DRUG ADMINISTERED [None]
  - FALL [None]
  - HYPERKERATOSIS [None]
  - IMPAIRED HEALING [None]
  - OPEN WOUND [None]
  - OSTEOMYELITIS [None]
  - WOUND [None]
